FAERS Safety Report 8529220-1 (Version None)
Quarter: 2012Q3

REPORT INFORMATION
  Report Type: 
  Country: None (occurrence: None)
  Receive Date: 20120723
  Receipt Date: 20120713
  Transmission Date: 20120928
  Serious: Yes (Death)
  Sender: FDA-Public Use
  Company Number: US-CELGENEUS-163-21880-12063444

PATIENT
  Sex: Female

DRUGS (4)
  1. COMPAZINE [Concomitant]
     Indication: NAUSEA
     Dosage: 40 MILLIGRAM
     Route: 048
     Dates: start: 20120221, end: 20120511
  2. COUMADIN [Concomitant]
     Route: 048
     Dates: start: 20111219, end: 20120511
  3. REVLIMID [Suspect]
     Dosage: 10 MILLIGRAM
     Route: 048
     Dates: start: 20120221, end: 20120511
  4. FLAGYL [Concomitant]
     Dosage: 250 MILLIGRAM
     Route: 048
     Dates: start: 20120221, end: 20120511

REACTIONS (1)
  - MYELODYSPLASTIC SYNDROME [None]
